FAERS Safety Report 24885097 (Version 1)
Quarter: 2025Q1

REPORT INFORMATION
  Report Type: Spontaneous
  Country: US (occurrence: US)
  Receive Date: 20250124
  Receipt Date: 20250124
  Transmission Date: 20250409
  Serious: Yes (Death)
  Sender: PFIZER
  Company Number: US-PFIZER INC-202500017282

PATIENT
  Age: 65 Year
  Sex: Female

DRUGS (1)
  1. TUKYSA [Suspect]
     Active Substance: TUCATINIB
     Dosage: 300 MG, 2X/DAY (150 MG TAKE TWO TABS PO BID (BY MOUTH))
     Route: 048
     Dates: end: 20250115

REACTIONS (1)
  - Death [Fatal]

NARRATIVE: CASE EVENT DATE: 20250115
